FAERS Safety Report 4757762-3 (Version None)
Quarter: 2005Q3

REPORT INFORMATION
  Report Type: 
  Country: None (occurrence: None)
  Receive Date: 20050830
  Receipt Date: 20050816
  Transmission Date: 20060218
  Serious: Yes (Other)
  Sender: FDA-Public Use
  Company Number: 2005-03008

PATIENT
  Sex: Female
  Weight: 38.3 kg

DRUGS (2)
  1. FERRLECIT [Suspect]
     Indication: ANAEMIA
     Dosage: 2 AMPULES, INTRAVENOUS
     Route: 042
     Dates: start: 20050101
  2. FERRLECIT [Suspect]
     Indication: ENDOSCOPY UPPER GASTROINTESTINAL TRACT
     Dosage: 2 AMPULES, INTRAVENOUS
     Route: 042
     Dates: start: 20050101

REACTIONS (5)
  - CIRCULATORY COLLAPSE [None]
  - CONDITION AGGRAVATED [None]
  - PALPITATIONS [None]
  - POLYARTHRITIS [None]
  - VERTIGO [None]
